FAERS Safety Report 7588503-2 (Version None)
Quarter: 2011Q3

REPORT INFORMATION
  Report Type: 
  Country: None (occurrence: None)
  Receive Date: 20110705
  Receipt Date: 20110628
  Transmission Date: 20111222
  Serious: Yes (Other)
  Sender: FDA-Public Use
  Company Number: US-PFIZER INC-2011144849

PATIENT
  Sex: Female
  Weight: 66 kg

DRUGS (2)
  1. PREMPRO [Suspect]
     Indication: OSTEOPOROSIS PROPHYLAXIS
     Dosage: 0.625 /2.5 MG DAILY
     Route: 048
     Dates: start: 19910101
  2. PREMPRO [Suspect]
     Dosage: 0.45 /1.5 MG ,DAILY
     Route: 048
     Dates: start: 20100101

REACTIONS (4)
  - DIZZINESS [None]
  - CATARACT [None]
  - VISUAL IMPAIRMENT [None]
  - ASTHENIA [None]
